FAERS Safety Report 4422853-3 (Version None)
Quarter: 2004Q3

REPORT INFORMATION
  Report Type: 
  Country: None (occurrence: None)
  Receive Date: 20040809
  Receipt Date: 20040809
  Transmission Date: 20050211
  Serious: Yes (Life-Threatening, Disabling)
  Sender: FDA-Public Use
  Company Number: None

PATIENT
  Age: 60 Year
  Sex: Male
  Weight: 117.028 kg

DRUGS (7)
  1. BIAXIN [Suspect]
     Indication: MULTIPLE MYELOMA
     Dosage: 40 MG 1-4, 8-1 1/2 ORAL
     Route: 048
     Dates: start: 20030612, end: 20040615
  2. BIAXIN [Suspect]
     Indication: MULTIPLE MYELOMA
     Dosage: 40 MG 1-4, 8-1 1/2 ORAL
     Route: 048
     Dates: start: 20040716, end: 20040723
  3. THALIDOMID [Concomitant]
  4. DECADRON [Concomitant]
  5. VELCADE [Concomitant]
  6. ZOLOFT [Concomitant]
  7. TRAZODONE HCL [Concomitant]

REACTIONS (7)
  - ACTIVITIES OF DAILY LIVING IMPAIRED [None]
  - ATROPHY [None]
  - BLOOD PRESSURE IMMEASURABLE [None]
  - BLOOD PRESSURE ORTHOSTATIC DECREASED [None]
  - DIARRHOEA [None]
  - DYSPNOEA [None]
  - MUSCULAR WEAKNESS [None]
